FAERS Safety Report 23656385 (Version 1)
Quarter: 2024Q1

REPORT INFORMATION
  Report Type: Spontaneous
  Country: US (occurrence: US)
  Receive Date: 20240321
  Receipt Date: 20240321
  Transmission Date: 20240409
  Serious: Yes (Hospitalization, Other)
  Sender: FDA-Public Use
  Company Number: US-LUPIN PHARMACEUTICALS INC.-2024-02227

PATIENT
  Age: 62 Year
  Sex: Male

DRUGS (3)
  1. DOXYCYCLINE [Suspect]
     Active Substance: DOXYCYCLINE
     Indication: Pneumothorax
     Dosage: 500 MG
     Route: 065
  2. SALINE [Concomitant]
     Active Substance: SODIUM CHLORIDE
     Indication: Pneumothorax
     Dosage: 150 MILLILITER
     Route: 065
  3. BUPIVACAINE [Concomitant]
     Active Substance: BUPIVACAINE
     Indication: Pneumothorax
     Dosage: 20 MILLILITER
     Route: 065

REACTIONS (3)
  - Pulmonary toxicity [Recovered/Resolved]
  - Acute respiratory failure [Recovering/Resolving]
  - Off label use [Unknown]
